FAERS Safety Report 25363012 (Version 2)
Quarter: 2025Q2

REPORT INFORMATION
  Report Type: Spontaneous
  Country: CN (occurrence: CN)
  Receive Date: 20250527
  Receipt Date: 20250529
  Transmission Date: 20250716
  Serious: Yes (Death)
  Sender: PFIZER
  Company Number: CN-PFIZER INC-PV202500061818

PATIENT
  Age: 68 Year
  Sex: Female
  Weight: 54 kg

DRUGS (14)
  1. FLUCONAZOLE [Suspect]
     Active Substance: FLUCONAZOLE
     Indication: Urinary tract candidiasis
     Dosage: 0.2 G, 1X/DAY
     Dates: start: 20231011, end: 20231015
  2. FLUCONAZOLE [Suspect]
     Active Substance: FLUCONAZOLE
     Indication: Candida sepsis
  3. FLUCONAZOLE [Suspect]
     Active Substance: FLUCONAZOLE
     Indication: Urinary tract infection
  4. VORICONAZOLE [Suspect]
     Active Substance: VORICONAZOLE
     Indication: Candida sepsis
     Dosage: 0.4 G, 2X/DAY
     Dates: start: 20231026, end: 20231026
  5. VORICONAZOLE [Suspect]
     Active Substance: VORICONAZOLE
     Indication: Urinary tract candidiasis
     Dosage: 0.2 G, 2X/DAY
     Dates: start: 20231027, end: 20231104
  6. CASPOFUNGIN [Suspect]
     Active Substance: CASPOFUNGIN
     Indication: Urinary tract candidiasis
     Dosage: 70 MG, 1X/DAY
     Dates: start: 20231015, end: 20231015
  7. CASPOFUNGIN [Suspect]
     Active Substance: CASPOFUNGIN
     Indication: Candida sepsis
     Dosage: 50 MG, 1X/DAY
     Dates: start: 20231016
  8. CASPOFUNGIN [Suspect]
     Active Substance: CASPOFUNGIN
     Dosage: 70 MG, 1X/DAY
     Dates: start: 20231110, end: 20231110
  9. CASPOFUNGIN [Suspect]
     Active Substance: CASPOFUNGIN
     Dosage: 50 MG, 1X/DAY
     Dates: start: 20231111, end: 20231118
  10. AMPHOTERICIN B [Suspect]
     Active Substance: AMPHOTERICIN B
     Indication: Urinary tract candidiasis
     Dosage: 3 MG/KG, DAILY (150 MG QD)
     Dates: start: 20231118, end: 20231208
  11. AMPHOTERICIN B [Suspect]
     Active Substance: AMPHOTERICIN B
     Indication: Candida sepsis
  12. FLUCYTOSINE [Suspect]
     Active Substance: FLUCYTOSINE
     Indication: Urinary tract candidiasis
     Dosage: 1250 MG, 3X/DAY
     Dates: start: 20231202, end: 20231208
  13. FLUCYTOSINE [Suspect]
     Active Substance: FLUCYTOSINE
     Indication: Candida sepsis
  14. PIPERACILLIN AND TAZOBACTAM [Suspect]
     Active Substance: PIPERACILLIN SODIUM\TAZOBACTAM SODIUM
     Indication: Urinary tract infection
     Dosage: 4.5 G, 3X/DAY
     Dates: start: 20231011

REACTIONS (1)
  - Drug ineffective [Fatal]
